FAERS Safety Report 24618342 (Version 1)
Quarter: 2024Q4

REPORT INFORMATION
  Report Type: Report from Study
  Country: JP (occurrence: JP)
  Receive Date: 20241114
  Receipt Date: 20241114
  Transmission Date: 20250115
  Serious: Yes (Hospitalization)
  Sender: ABBVIE
  Company Number: JP-ABBVIE-5988950

PATIENT
  Age: 73 Year
  Sex: Male

DRUGS (1)
  1. FOSCARBIDOPA\FOSLEVODOPA [Suspect]
     Active Substance: FOSCARBIDOPA\FOSLEVODOPA
     Indication: Parkinson^s disease
     Dosage: DAYTIME (STANDARD): 0.4 ML, NIGHTTIME: 0.2 ML, ED: 0.2 ML
     Route: 058
     Dates: start: 20241016

REACTIONS (5)
  - Malaise [Unknown]
  - Product use issue [Unknown]
  - Product use issue [Unknown]
  - On and off phenomenon [Unknown]
  - Product prescribing error [Unknown]

NARRATIVE: CASE EVENT DATE: 20241001
